FAERS Safety Report 15423634 (Version 2)
Quarter: 2018Q3

REPORT INFORMATION
  Report Type: Spontaneous
  Country: US (occurrence: US)
  Receive Date: 20180925
  Receipt Date: 20180927
  Transmission Date: 20181010
  Serious: Yes (Other)
  Sender: FDA-Public Use
  Company Number: US-PFIZER INC-2018380673

PATIENT
  Age: 36 Year
  Sex: Female
  Weight: 172.34 kg

DRUGS (2)
  1. METHOTREXATE SODIUM. [Suspect]
     Active Substance: METHOTREXATE SODIUM
     Indication: RHEUMATOID ARTHRITIS
     Dosage: 0.8 MG, 1X/DAY
     Route: 058
     Dates: end: 201808
  2. HUMIRA [Concomitant]
     Active Substance: ADALIMUMAB
     Indication: RHEUMATOID ARTHRITIS
     Dosage: 0.40 ML, WEEKLY (ONCE A WEEK)
     Route: 058
     Dates: start: 2014

REACTIONS (9)
  - Systemic lupus erythematosus [Not Recovered/Not Resolved]
  - Skin discolouration [Recovering/Resolving]
  - Urticaria [Recovered/Resolved]
  - Oedema [Unknown]
  - Pulmonary fibrosis [Unknown]
  - Antiphospholipid syndrome [Not Recovered/Not Resolved]
  - Haemoglobin decreased [Unknown]
  - Fibromyalgia [Not Recovered/Not Resolved]
  - Bone marrow failure [Unknown]

NARRATIVE: CASE EVENT DATE: 2012
